FAERS Safety Report 7865245-7 (Version None)
Quarter: 2011Q4

REPORT INFORMATION
  Report Type: 
  Country: None (occurrence: None)
  Receive Date: 20111028
  Receipt Date: 20101108
  Transmission Date: 20120403
  Serious: No
  Sender: FDA-Public Use
  Company Number: US-GLAXOSMITHKLINE-A0891312A

PATIENT
  Age: 77 Year
  Sex: Male

DRUGS (6)
  1. FLOMAX [Concomitant]
  2. ADVAIR DISKUS 100/50 [Suspect]
     Indication: CHRONIC OBSTRUCTIVE PULMONARY DISEASE
     Route: 055
     Dates: start: 20101001
  3. VIAGRA [Concomitant]
  4. LISINOPRIL [Concomitant]
  5. VICODIN [Concomitant]
  6. HYTRIN [Concomitant]

REACTIONS (3)
  - DYSURIA [None]
  - OEDEMA PERIPHERAL [None]
  - JOINT SWELLING [None]
